FAERS Safety Report 25553041 (Version 3)
Quarter: 2025Q4

REPORT INFORMATION
  Report Type: Report from Study
  Country: US (occurrence: None)
  Receive Date: 20250715
  Receipt Date: 20251224
  Transmission Date: 20260118
  Serious: Yes (Hospitalization, Other)
  Sender: UCB
  Company Number: US-UCBSA-2025027225

PATIENT
  Age: 15 Year
  Weight: 58.7 kg

DRUGS (5)
  1. FENFLURAMINE [Interacting]
     Active Substance: FENFLURAMINE
     Indication: Severe myoclonic epilepsy of infancy
     Dosage: 3.8 MILLILITER, 2X/DAY (BID)
  2. FENFLURAMINE [Interacting]
     Active Substance: FENFLURAMINE
     Dosage: 17.5 MILLIGRAM/DAY
  3. FENFLURAMINE [Interacting]
     Active Substance: FENFLURAMINE
     Dosage: 11.80 BID
  4. FENFLURAMINE [Interacting]
     Active Substance: FENFLURAMINE
     Dosage: 4 MILLILITER, 2X/DAY (BID)
  5. FENFLURAMINE [Interacting]
     Active Substance: FENFLURAMINE
     Dosage: 4 MILLILITER, 2X/DAY (BID)

REACTIONS (4)
  - Seizure [Not Recovered/Not Resolved]
  - Drug interaction [Not Recovered/Not Resolved]
  - Abdominal pain [Not Recovered/Not Resolved]
  - Incorrect dose administered [Unknown]
